FAERS Safety Report 5086369-6 (Version None)
Quarter: 2006Q3

REPORT INFORMATION
  Report Type: 
  Country: None (occurrence: None)
  Receive Date: 20060703
  Receipt Date: 20060327
  Transmission Date: 20061208
  Serious: No
  Sender: FDA-Public Use
  Company Number: 2006S1002769

PATIENT
  Age: 25 Year
  Sex: Female

DRUGS (2)
  1. CLOZAPINE [Suspect]
     Indication: PSYCHOTIC DISORDER
     Dosage: 100 MG;BID;ORAL
     Route: 048
     Dates: start: 20051001
  2. VALPROIC ACID [Concomitant]

REACTIONS (1)
  - GRANULOCYTOPENIA [None]
